FAERS Safety Report 5209588-4 (Version None)
Quarter: 2006Q4

REPORT INFORMATION
  Report Type: 
  Country: None (occurrence: None)
  Receive Date: 20061122
  Receipt Date: 20051128
  Transmission Date: 20070319
  Serious: Yes (Other)
  Sender: FDA-Public Use
  Company Number: 2005162040

PATIENT
  Age: 61 Year
  Sex: Male
  Weight: 63.5036 kg

DRUGS (3)
  1. LIPITOR [Suspect]
     Indication: BLOOD CHOLESTEROL
     Dosage: 10 MG (10 MG, 1 IN 1 D)
     Dates: start: 20050101
  2. PLAVIX [Concomitant]
  3. ASPIRIN [Concomitant]

REACTIONS (7)
  - AGITATION [None]
  - AMNESIA [None]
  - ANGER [None]
  - BLOOD CHOLESTEROL ABNORMAL [None]
  - CHEST PAIN [None]
  - HALLUCINATION [None]
  - IMPAIRED DRIVING ABILITY [None]
